FAERS Safety Report 9569155 (Version 1)
Quarter: 2013Q3

REPORT INFORMATION
  Report Type: Spontaneous
  Country: US (occurrence: US)
  Receive Date: 20130930
  Receipt Date: 20130930
  Transmission Date: 20140515
  Serious: No
  Sender: FDA-Public Use
  Company Number: US-AMGEN-USASP2013058946

PATIENT
  Age: 62 Year
  Sex: Female
  Weight: 48.07 kg

DRUGS (7)
  1. ENBREL [Suspect]
     Indication: PRODUCT USED FOR UNKNOWN INDICATION
     Dosage: 50 MG, QWK
     Route: 058
  2. CELEBREX [Concomitant]
     Dosage: 200 MG, UNK
  3. LIPITOR [Concomitant]
     Dosage: 40 MG, UNK
  4. ARAVA [Concomitant]
     Dosage: 10 MG, UNK
  5. LORAZEPAM [Concomitant]
     Dosage: 1 MG, UNK
  6. ZANTAC [Concomitant]
     Dosage: 150 MG, UNK
  7. CALCIUM +D                         /00944201/ [Concomitant]
     Dosage: UNK

REACTIONS (2)
  - Arthropathy [Unknown]
  - Malaise [Unknown]
